FAERS Safety Report 7741209-9 (Version None)
Quarter: 2011Q3

REPORT INFORMATION
  Report Type: 
  Country: None (occurrence: None)
  Receive Date: 20110909
  Receipt Date: 20110815
  Transmission Date: 20111222
  Serious: No
  Sender: FDA-Public Use
  Company Number: US-BAYER-2011-073859

PATIENT
  Sex: Female

DRUGS (1)
  1. AVELOX [Suspect]
     Indication: PHARYNGITIS STREPTOCOCCAL
     Dosage: 400MG/ONE TIME
     Route: 048

REACTIONS (3)
  - PALPITATIONS [None]
  - FEAR OF DEATH [None]
  - PAIN IN EXTREMITY [None]
